FAERS Safety Report 16669058 (Version 4)
Quarter: 2019Q3

REPORT INFORMATION
  Report Type: Spontaneous
  Country: US (occurrence: US)
  Receive Date: 20190805
  Receipt Date: 20190904
  Transmission Date: 20191004
  Serious: No
  Sender: FDA-Public Use
  Company Number: US-ALKERMES INC.-ALK-2019-004021

PATIENT
  Age: 27 Year
  Sex: Male

DRUGS (6)
  1. VIVITROL [Suspect]
     Active Substance: NALTREXONE
     Indication: DRUG DEPENDENCE
     Dosage: 380 MG, EVERY 3 WEEKS
     Route: 030
     Dates: start: 201902, end: 201902
  2. WELLBUTRIN [Concomitant]
     Active Substance: BUPROPION HYDROCHLORIDE
     Indication: PRODUCT USED FOR UNKNOWN INDICATION
     Dosage: 300 MG, QD
  3. PRAZOSIN. [Concomitant]
     Active Substance: PRAZOSIN
     Indication: NIGHT SWEATS
     Dosage: 4 MG, PRN
  4. VIVITROL [Suspect]
     Active Substance: NALTREXONE
     Dosage: 380 MG, EVERY 3 WEEKS
     Route: 030
     Dates: start: 201804, end: 201804
  5. VIVITROL [Suspect]
     Active Substance: NALTREXONE
     Dosage: 380 MG, QMO
     Route: 030
     Dates: start: 201802, end: 201802
  6. FLUOXETINE [Concomitant]
     Active Substance: FLUOXETINE HYDROCHLORIDE
     Indication: PRODUCT USED FOR UNKNOWN INDICATION
     Dosage: 20 MG, QD

REACTIONS (4)
  - Inappropriate schedule of product administration [Recovered/Resolved]
  - Drug dependence [Recovered/Resolved]
  - Drug ineffective [Recovered/Resolved]
  - Euphoric mood [Recovered/Resolved]

NARRATIVE: CASE EVENT DATE: 201804
